FAERS Safety Report 6195247-0 (Version None)
Quarter: 2009Q2

REPORT INFORMATION
  Report Type: 
  Country: None (occurrence: None)
  Receive Date: 20090519
  Receipt Date: 20090512
  Transmission Date: 20091009
  Serious: Yes (Other)
  Sender: FDA-Public Use
  Company Number: US-ELI_LILLY_AND_COMPANY-US200905002247

PATIENT
  Sex: Female

DRUGS (2)
  1. HUMALOG [Suspect]
     Dosage: 15 U, DAILY (1/D)
  2. LANTUS [Concomitant]
     Dosage: 7 U, 2/D

REACTIONS (1)
  - BLINDNESS [None]
